FAERS Safety Report 18813394 (Version 1)
Quarter: 2021Q1

REPORT INFORMATION
  Report Type: Spontaneous
  Country: US (occurrence: US)
  Receive Date: 20210201
  Receipt Date: 20210201
  Transmission Date: 20210419
  Serious: Yes (Other)
  Sender: FDA-Public Use
  Company Number: US-BEH-2021127606

PATIENT
  Age: 71 Year
  Sex: Male

DRUGS (1)
  1. HIZENTRA [Suspect]
     Active Substance: HUMAN IMMUNOGLOBULIN G
     Indication: IMMUNODEFICIENCY
     Dosage: 20 GRAM, QOW
     Route: 058
     Dates: start: 201804

REACTIONS (6)
  - Injection site mass [Unknown]
  - Circumstance or information capable of leading to medication error [Unknown]
  - Vascular occlusion [Unknown]
  - No adverse event [Unknown]
  - Chest pain [Unknown]
  - Injection site bruising [Unknown]

NARRATIVE: CASE EVENT DATE: 202101
